FAERS Safety Report 4961537-X (Version None)
Quarter: 2006Q1

REPORT INFORMATION
  Report Type: 
  Country: None (occurrence: None)
  Receive Date: 20060329
  Receipt Date: 20060316
  Transmission Date: 20060701
  Serious: Yes (Other)
  Sender: FDA-Public Use
  Company Number: 2006038093

PATIENT
  Sex: Male
  Weight: 4.12 kg

DRUGS (1)
  1. HYDROXYZINE HCL [Suspect]
     Indication: ANXIETY
     Dosage: 150 MG, DAILY

REACTIONS (7)
  - CAESAREAN SECTION [None]
  - CONVULSION NEONATAL [None]
  - DRUG EXPOSURE DURING PREGNANCY [None]
  - DRUG LEVEL BELOW THERAPEUTIC [None]
  - DRUG WITHDRAWAL SYNDROME [None]
  - GRAND MAL CONVULSION [None]
  - HYPOTONIA NEONATAL [None]
